FAERS Safety Report 5670303-1 (Version None)
Quarter: 2008Q2

REPORT INFORMATION
  Report Type: 
  Country: None (occurrence: None)
  Receive Date: 20080229
  Receipt Date: 20070425
  Transmission Date: 20081010
  Serious: Yes (Other)
  Sender: FDA-Public Use
  Company Number: 237615

PATIENT
  Age: 7 Year
  Sex: Male
  Weight: 22.7 kg

DRUGS (4)
  1. NUTROPIN AQ [Suspect]
     Indication: BLOOD GROWTH HORMONE DECREASED
     Dosage: 0.9 MG, 7/WEEK, SUBCUTANEOUS
     Route: 058
     Dates: start: 20060710
  2. LEVOXYL [Concomitant]
  3. ZYRTEC [Concomitant]
  4. NASONEX [Concomitant]

REACTIONS (1)
  - SCOLIOSIS [None]
